FAERS Safety Report 17731854 (Version 2)
Quarter: 2020Q2

REPORT INFORMATION
  Report Type: Report from Study
  Country: None (occurrence: PR)
  Receive Date: 20200501
  Receipt Date: 20200528
  Transmission Date: 20200714
  Serious: Yes (Death, Hospitalization)
  Sender: FDA-Public Use
  Company Number: PR-ABBVIE-20K-131-3387051-00

PATIENT
  Sex: Male

DRUGS (1)
  1. VENCLEXTA [Suspect]
     Active Substance: VENETOCLAX
     Indication: ACUTE MYELOID LEUKAEMIA
     Route: 048
     Dates: start: 20200220, end: 2020

REACTIONS (2)
  - Death [Fatal]
  - Hospitalisation [Recovered/Resolved]

NARRATIVE: CASE EVENT DATE: 20200308
